FAERS Safety Report 4789950-4 (Version None)
Quarter: 2005Q4

REPORT INFORMATION
  Report Type: 
  Country: None (occurrence: None)
  Receive Date: 20051006
  Receipt Date: 20050922
  Transmission Date: 20060501
  Serious: Yes (Hospitalization, Disabling)
  Sender: FDA-Public Use
  Company Number: PT-JNJFOC-20051000763

PATIENT
  Sex: Male

DRUGS (3)
  1. TRAMAL RETARD [Suspect]
     Route: 048
  2. BECLOMETHASONE DIPROPIONATE [Concomitant]
     Indication: DRUG USE FOR UNKNOWN INDICATION
     Route: 065
  3. SALMETEROL XINAFOATE [Concomitant]
     Indication: DRUG USE FOR UNKNOWN INDICATION
     Route: 065

REACTIONS (9)
  - ANOREXIA [None]
  - BALANCE DISORDER [None]
  - BEDRIDDEN [None]
  - BLINDNESS [None]
  - CONFUSIONAL STATE [None]
  - DIARRHOEA [None]
  - SLEEP DISORDER [None]
  - TREMOR [None]
  - VOMITING [None]
